FAERS Safety Report 5773249-3 (Version None)
Quarter: 2008Q2

REPORT INFORMATION
  Report Type: 
  Country: None (occurrence: None)
  Receive Date: 20080613
  Receipt Date: 20080613
  Transmission Date: 20081010
  Serious: Yes (Other)
  Sender: FDA-Public Use
  Company Number: None

PATIENT
  Age: 47 Year
  Sex: Female
  Weight: 113.3993 kg

DRUGS (1)
  1. SINGULAIR [Suspect]
     Indication: ASTHMA
     Dosage: 1 TABLET EVERY NIGHT PO
     Route: 048
     Dates: start: 20080115, end: 20080510

REACTIONS (3)
  - BLOOD URINE PRESENT [None]
  - CHROMATURIA [None]
  - URINE ODOUR ABNORMAL [None]
